FAERS Safety Report 7562170-6 (Version None)
Quarter: 2011Q2

REPORT INFORMATION
  Report Type: 
  Country: None (occurrence: None)
  Receive Date: 20110614
  Receipt Date: 20110601
  Transmission Date: 20111010
  Serious: Yes (Other)
  Sender: FDA-Public Use
  Company Number: 2011MA006650

PATIENT
  Age: 54 Year
  Sex: Male

DRUGS (1)
  1. PHENYTOIN [Suspect]
     Indication: MENINGIOMA
     Dates: start: 20060101, end: 20070101

REACTIONS (1)
  - ACUTE GENERALISED EXANTHEMATOUS PUSTULOSIS [None]
